FAERS Safety Report 7148060-1 (Version None)
Quarter: 2010Q4

REPORT INFORMATION
  Report Type: 
  Country: None (occurrence: None)
  Receive Date: 20101209
  Receipt Date: 20101125
  Transmission Date: 20110411
  Serious: Yes (Other)
  Sender: FDA-Public Use
  Company Number: FR-ELI_LILLY_AND_COMPANY-FR201011007081

PATIENT
  Age: 30 Year
  Sex: Female

DRUGS (3)
  1. ZYPREXA [Suspect]
     Route: 048
  2. LOXAPAC /00401802/ [Concomitant]
     Route: 048
  3. DEPAMIDE [Concomitant]
     Route: 048

REACTIONS (2)
  - LEUKOPENIA [None]
  - NEUTROPENIA [None]
